FAERS Safety Report 7968037-3 (Version None)
Quarter: 2011Q4

REPORT INFORMATION
  Report Type: 
  Country: None (occurrence: None)
  Receive Date: 20111209
  Receipt Date: 20111128
  Transmission Date: 20120403
  Serious: Yes (Hospitalization, Disabling, Other)
  Sender: FDA-Public Use
  Company Number: US-ACTELION-A-NJ2011-57746

PATIENT

DRUGS (10)
  1. DIGOXIN [Concomitant]
  2. LASIX [Concomitant]
  3. PRAVACHOL [Concomitant]
  4. PLAVIX [Concomitant]
  5. ALENDRONATE SODIUM [Concomitant]
  6. LANTUS [Concomitant]
  7. HUMALOG [Concomitant]
  8. ASPIRIN [Concomitant]
  9. VITAMIN D [Concomitant]
  10. VENTAVIS [Suspect]
     Indication: PULMONARY ARTERIAL HYPERTENSION
     Dosage: 5.0 ?G, QD
     Route: 055
     Dates: start: 20110711, end: 20111106

REACTIONS (3)
  - CEREBROVASCULAR ACCIDENT [None]
  - ACUTE MYOCARDIAL INFARCTION [None]
  - PARALYSIS FLACCID [None]
